FAERS Safety Report 6863996-4 (Version None)
Quarter: 2010Q3

REPORT INFORMATION
  Report Type: 
  Country: None (occurrence: None)
  Receive Date: 20100721
  Receipt Date: 20080313
  Transmission Date: 20110219
  Serious: No
  Sender: FDA-Public Use
  Company Number: US-PFIZER INC-2008023870

PATIENT
  Sex: Female
  Weight: 68 kg

DRUGS (4)
  1. CHANTIX [Suspect]
     Dates: start: 20070901, end: 20070901
  2. PRAVASTATIN [Concomitant]
     Indication: BLOOD CHOLESTEROL
  3. LEVOTHROID [Concomitant]
     Indication: THYROID DISORDER
  4. ACTONEL [Concomitant]

REACTIONS (4)
  - DEPRESSION [None]
  - HEADACHE [None]
  - MEMORY IMPAIRMENT [None]
  - NAUSEA [None]
